FAERS Safety Report 8299796-0 (Version None)
Quarter: 2012Q2

REPORT INFORMATION
  Report Type: 
  Country: None (occurrence: None)
  Receive Date: 20120419
  Receipt Date: 20120419
  Transmission Date: 20120825
  Serious: Yes (Other)
  Sender: FDA-Public Use
  Company Number: None

PATIENT
  Age: 37 Year
  Sex: Male
  Weight: 74.842 kg

DRUGS (2)
  1. FINASTERIDE [Suspect]
     Indication: HAIR TRANSPLANT
     Dosage: 1.0 MG
     Route: 048
     Dates: start: 20110111, end: 20121223
  2. FINASTERIDE [Suspect]
     Indication: ALOPECIA
     Dosage: 1.0 MG
     Route: 048
     Dates: start: 20110111, end: 20121223

REACTIONS (2)
  - ERECTILE DYSFUNCTION [None]
  - LIBIDO DECREASED [None]
